FAERS Safety Report 24151958 (Version 2)
Quarter: 2024Q4

REPORT INFORMATION
  Report Type: Spontaneous
  Country: US (occurrence: US)
  Receive Date: 20240730
  Receipt Date: 20241021
  Transmission Date: 20250115
  Serious: No
  Sender: ROCHE
  Company Number: US-ROCHE-3573899

PATIENT
  Sex: Female

DRUGS (2)
  1. COTELLIC [Suspect]
     Active Substance: COBIMETINIB
     Indication: Cutaneous T-cell lymphoma
     Dosage: FREQUENCY TEXT:ON DAY 1 TO 21 OF 28-DAY CYCLE
     Route: 048
  2. COTELLIC [Suspect]
     Active Substance: COBIMETINIB
     Indication: Cutaneous T-cell lymphoma

REACTIONS (2)
  - Off label use [Unknown]
  - Restlessness [Unknown]
